FAERS Safety Report 23259440 (Version 1)
Quarter: 2023Q4

REPORT INFORMATION
  Report Type: Spontaneous
  Country: PT (occurrence: PT)
  Receive Date: 20231204
  Receipt Date: 20231204
  Transmission Date: 20240110
  Serious: Yes (Other)
  Sender: FDA-Public Use
  Company Number: PT-PFIZER INC-PV202300186879

PATIENT
  Age: 55 Year
  Sex: Female

DRUGS (8)
  1. CASPOFUNGIN [Suspect]
     Active Substance: CASPOFUNGIN
     Indication: Bronchopulmonary aspergillosis
     Dosage: 500 MG, 1X/DAY (MAINTENANCE DOSE)
     Route: 065
  2. CASPOFUNGIN [Suspect]
     Active Substance: CASPOFUNGIN
     Dosage: 70 MILLIGRAM, QD (70 MG (LOADING DOSE)
     Route: 065
  3. VORICONAZOLE [Suspect]
     Active Substance: VORICONAZOLE
     Indication: Bronchopulmonary aspergillosis
     Dosage: 12 MILLIGRAM/KILOGRAM, QD (6 MG/KG, 2X/DAY (LOADING DOSE)
     Route: 042
  4. VORICONAZOLE [Suspect]
     Active Substance: VORICONAZOLE
     Dosage: 8 MILLIGRAM/KILOGRAM, QD (4MG /KG 12/12H (MAINTENANCE)
     Route: 042
  5. TIGECYCLINE [Concomitant]
     Active Substance: TIGECYCLINE
     Indication: Infection
     Dosage: 100 MG, QD (1X/DAY)
     Route: 065
  6. TIGECYCLINE [Concomitant]
     Active Substance: TIGECYCLINE
     Dosage: 100 MILLIGRAM, QD (50 MG, 2X/DAY (12/12H)
     Route: 065
  7. MEROPENEM [Concomitant]
     Active Substance: MEROPENEM
     Indication: Infection
     Dosage: 3 GRAM, QD (1 G, 3X/DAY (8/8 H)
     Route: 065
  8. LINEZOLID [Concomitant]
     Active Substance: LINEZOLID
     Indication: Infection
     Dosage: 1200 MILLIGRAM, QD (600 MG, 2X/DAY (12/12H)
     Route: 065

REACTIONS (2)
  - Hepatotoxicity [Unknown]
  - Therapeutic product effect incomplete [Unknown]
